FAERS Safety Report 9530736 (Version 1)
Quarter: 2013Q2

REPORT INFORMATION
  Report Type: Spontaneous
  Country: US (occurrence: None)
  Receive Date: 20130418
  Receipt Date: 20130418
  Transmission Date: 20140414
  Serious: Yes (Other)
  Sender: FDA-Public Use
  Company Number: 1301USA001753

PATIENT
  Age: 7 Year
  Sex: Male

DRUGS (6)
  1. MONTELUKAST SODIUM [Suspect]
     Indication: ASTHMA
  2. SALMETEROL [Suspect]
  3. FLUTICASONE PROPIONATE [Suspect]
     Dosage: 1500 MCG
  4. ALBUTEROL [Suspect]
     Dosage: 20 MG (FOUR TIMES DAILY) ; IH
  5. IPRATROPIUM BROMIDE [Suspect]
     Dosage: 1000 MCG (FOUR CONTINUED)
  6. BUDESONIDE [Suspect]
     Dosage: 1000 MCG, NASAL
     Route: 045

REACTIONS (11)
  - Vomiting [None]
  - Somnolence [None]
  - Rhinorrhoea [None]
  - Pyrexia [None]
  - Hyponatraemia [None]
  - Hypoglycaemia [None]
  - Condition aggravated [None]
  - Blood cortisol decreased [None]
  - Asthma [None]
  - Adrenocortical insufficiency acute [None]
  - Abdominal pain [None]
